FAERS Safety Report 23738155 (Version 2)
Quarter: 2024Q2

REPORT INFORMATION
  Report Type: Report from Study
  Country: JP (occurrence: JP)
  Receive Date: 20240412
  Receipt Date: 20240625
  Transmission Date: 20240716
  Serious: Yes (Disabling, Other)
  Sender: FDA-Public Use
  Company Number: JP-ONO-2024JP007740

PATIENT
  Age: 90 Year
  Weight: 53 kg

DRUGS (2)
  1. BRAFTOVI [Suspect]
     Active Substance: ENCORAFENIB
     Indication: Colon cancer
     Dosage: 100 MG, EVERYDAY
     Route: 048
     Dates: start: 20230718, end: 20230806
  2. CETUXIMAB [Concomitant]
     Active Substance: CETUXIMAB
     Indication: Colon cancer
     Dosage: 250 MG
     Route: 065
     Dates: start: 20230718, end: 20230801

REACTIONS (3)
  - Spinal compression fracture [Not Recovered/Not Resolved]
  - Fall [Unknown]
  - Underdose [Unknown]

NARRATIVE: CASE EVENT DATE: 20230718
